FAERS Safety Report 9249874 (Version 2)
Quarter: 2013Q2

REPORT INFORMATION
  Report Type: Spontaneous
  Country: JP (occurrence: JP)
  Receive Date: 20130423
  Receipt Date: 20130612
  Transmission Date: 20140414
  Serious: Yes (Life-Threatening, Hospitalization, Other)
  Sender: FDA-Public Use
  Company Number: JP-009507513-1304JPN013343

PATIENT
  Age: 63 Year
  Sex: Male
  Weight: 69 kg

DRUGS (7)
  1. REMERON [Suspect]
     Indication: DEPRESSION
     Dosage: 45 MG, QD
     Route: 048
  2. REMERON [Suspect]
     Dosage: DAILY DOSE UNKNOWN AND RECRUITMENT
     Route: 048
  3. REMERON [Suspect]
     Dosage: 15 MG, QD
     Route: 048
     Dates: start: 20120904, end: 20120927
  4. REMERON [Suspect]
     Dosage: 30 MG, DIVIDED DOSE UNKNOWN
     Route: 048
     Dates: start: 20120928, end: 20121001
  5. REMERON [Suspect]
     Dosage: 45 MG, DIVIDED DOSE UNKNOWN
     Route: 048
     Dates: start: 20121002, end: 20121224
  6. ROHYPNOL [Concomitant]
     Indication: INSOMNIA
     Dosage: 2 MG, QD
     Route: 048
     Dates: end: 20121224
  7. LENDORMIN [Concomitant]
     Indication: INSOMNIA
     Dosage: 0.25 MG, QD
     Route: 048
     Dates: end: 20121224

REACTIONS (2)
  - Convulsion [Recovered/Resolved]
  - Grand mal convulsion [Recovering/Resolving]
